FAERS Safety Report 9929515 (Version 1)
Quarter: 2014Q1

REPORT INFORMATION
  Report Type: Spontaneous
  Country: JP (occurrence: JP)
  Receive Date: 20140227
  Receipt Date: 20140227
  Transmission Date: 20141002
  Serious: Yes (Hospitalization)
  Sender: FDA-Public Use
  Company Number: JP-GLAXOSMITHKLINE-B0972494A

PATIENT
  Age: 59 Year
  Sex: Female
  Weight: 65 kg

DRUGS (3)
  1. OMEGA-3-ACID ETHYL ESTERS [Suspect]
     Indication: DYSLIPIDAEMIA
     Dosage: 2000MG PER DAY
     Route: 048
     Dates: start: 20131029, end: 20131129
  2. NORVASC [Concomitant]
  3. MICARDIS [Concomitant]

REACTIONS (1)
  - Haemoptysis [Recovered/Resolved]
